FAERS Safety Report 6782028 (Version 21)
Quarter: 2014Q1

REPORT INFORMATION
  Report Type: Spontaneous
  Country: US (occurrence: US)
  Receive Date: 20081008
  Receipt Date: 20140326
  Transmission Date: 20141002
  Serious: Yes (Death, Other)
  Sender: FDA-Public Use
  Company Number: PHEH2008US08722

PATIENT
  Age: 65 Year
  Sex: Female

DRUGS (37)
  1. AREDIA [Suspect]
     Indication: METASTASES TO BONE
     Route: 042
  2. ZOMETA [Suspect]
     Indication: METASTASES TO BONE
     Dosage: 4 MG, QMO
     Route: 042
  3. GEMZAR [Suspect]
  4. MOBIC [Suspect]
  5. TAXOL [Concomitant]
  6. COUMADIN [Concomitant]
  7. PRAVASTATIN [Concomitant]
  8. MELOXICAM [Concomitant]
  9. OMEPRAZOLE [Concomitant]
  10. MORPHINE [Concomitant]
  11. XELODA [Concomitant]
  12. PRILOSEC [Concomitant]
  13. MS CONTIN [Concomitant]
  14. OXYCODONE [Concomitant]
  15. PRINIVIL [Concomitant]
  16. FEMARA [Concomitant]
  17. TIMOPTIC [Concomitant]
  18. TOBRADEX [Concomitant]
  19. CHEMOTHERAPEUTICS [Concomitant]
  20. CIPRO [Concomitant]
  21. CEPHALEXIN [Concomitant]
  22. AMOXICILLIN W/CLAVULANIC ACID [Concomitant]
  23. AVASTIN [Concomitant]
  24. REGRANEX [Concomitant]
  25. DILAUDID [Concomitant]
  26. CYMBALTA [Concomitant]
  27. MEDROL [Concomitant]
  28. CARBOPLATIN [Concomitant]
  29. TAXOTERE [Concomitant]
  30. ISOVUE [Concomitant]
  31. EPIRUBICIN [Concomitant]
  32. 5-FU [Concomitant]
  33. CYTOXAN [Concomitant]
  34. TAMOXIFEN [Concomitant]
  35. FASLODEX [Concomitant]
  36. TOPAMAX [Concomitant]
     Dosage: 100 MG, BID
  37. VIOXX [Concomitant]

REACTIONS (141)
  - Death [Fatal]
  - Osteonecrosis of jaw [Unknown]
  - Pain [Unknown]
  - Disability [Unknown]
  - Deformity [Unknown]
  - Anxiety [Unknown]
  - Anhedonia [Unknown]
  - Osteomyelitis [Unknown]
  - Hypoaesthesia [Unknown]
  - Tooth infection [Unknown]
  - Wound infection [Unknown]
  - Abscess neck [Unknown]
  - Skin exfoliation [Unknown]
  - Renal failure chronic [Unknown]
  - Synovial cyst [Unknown]
  - Breast cancer metastatic [Unknown]
  - Metastases to liver [Unknown]
  - Metastases to spine [Unknown]
  - Metastases to central nervous system [Unknown]
  - Metastases to meninges [Unknown]
  - Metastases to lymph nodes [Unknown]
  - Metastases to eye [Unknown]
  - Spinal osteoarthritis [Unknown]
  - Hydronephrosis [Unknown]
  - Hepatic mass [Unknown]
  - Carpal tunnel syndrome [Unknown]
  - Osteopenia [Unknown]
  - Oesophageal pain [Unknown]
  - Chest discomfort [Unknown]
  - Osteoporosis [Unknown]
  - Depression [Unknown]
  - Cerebral atrophy [Unknown]
  - Palmar-plantar erythrodysaesthesia syndrome [Unknown]
  - Lymphadenopathy [Unknown]
  - Cystitis [Unknown]
  - Hiatus hernia [Unknown]
  - Barrett^s oesophagus [Unknown]
  - Acquired oesophageal web [Unknown]
  - Duodenal ulcer [Unknown]
  - Thrombocytopenia [Unknown]
  - Facet joint syndrome [Unknown]
  - Ophthalmoplegia [Unknown]
  - Cervical dysplasia [Unknown]
  - Osteoarthritis [Unknown]
  - Intervertebral disc degeneration [Unknown]
  - Intervertebral disc protrusion [Unknown]
  - Spondylolisthesis [Unknown]
  - Lumbar spinal stenosis [Unknown]
  - Cervical spinal stenosis [Unknown]
  - Vertebral foraminal stenosis [Unknown]
  - Renal failure acute [Unknown]
  - Impaired healing [Unknown]
  - Tenosynovitis stenosans [Unknown]
  - Metaplasia [Unknown]
  - Night sweats [Unknown]
  - Pancytopenia [Unknown]
  - Haemorrhagic erosive gastritis [Unknown]
  - Musculoskeletal pain [Unknown]
  - Chest pain [Unknown]
  - Pollakiuria [Unknown]
  - Arthralgia [Unknown]
  - Pain in extremity [Unknown]
  - Paraesthesia [Unknown]
  - Decreased appetite [Unknown]
  - Peptic ulcer [Unknown]
  - Alopecia [Unknown]
  - Vulvitis [Unknown]
  - Bone pain [Unknown]
  - Diplopia [Unknown]
  - Hypercholesterolaemia [Unknown]
  - Vertigo [Unknown]
  - Back pain [Unknown]
  - Anaemia [Unknown]
  - Abdominal pain [Unknown]
  - Dyspepsia [Unknown]
  - Impaired gastric emptying [Unknown]
  - Intraocular pressure increased [Unknown]
  - Cataract [Unknown]
  - Strabismus [Unknown]
  - Fungal infection [Unknown]
  - Eczema [Recovered/Resolved]
  - Dermatitis [Recovered/Resolved]
  - Skin papilloma [Unknown]
  - Squamous cell carcinoma [Unknown]
  - Keratoacanthoma [Unknown]
  - Seborrhoeic keratosis [Unknown]
  - Dyshidrotic eczema [Unknown]
  - Plasma cell myeloma [Unknown]
  - Actinic keratosis [Unknown]
  - Cerumen impaction [Unknown]
  - Ear pain [Unknown]
  - Syncope [Unknown]
  - Neuralgia [Unknown]
  - Bronchitis [Unknown]
  - Paronychia [Unknown]
  - Bursitis [Unknown]
  - Ingrowing nail [Unknown]
  - Gastrooesophageal reflux disease [Unknown]
  - Oesophagitis [Unknown]
  - Coronary artery disease [Unknown]
  - Intervertebral disc space narrowing [Unknown]
  - Joint swelling [Unknown]
  - Dyspnoea [Unknown]
  - Muscle hypertrophy [Unknown]
  - Dizziness [Unknown]
  - Pleocytosis [Unknown]
  - Exostosis [Unknown]
  - Emphysema [Unknown]
  - Bone cyst [Unknown]
  - Arthropathy [Unknown]
  - Hyperlipidaemia [Unknown]
  - Cyst [Unknown]
  - Atrial fibrillation [Unknown]
  - Soft tissue disorder [Unknown]
  - Arthritis [Unknown]
  - Diarrhoea [Unknown]
  - Local swelling [Unknown]
  - Muscular weakness [Unknown]
  - Neck pain [Unknown]
  - Myositis [Unknown]
  - Pain in jaw [Unknown]
  - Bone swelling [Unknown]
  - Exposed bone in jaw [Unknown]
  - Cough [Unknown]
  - Nausea [Unknown]
  - Fatigue [Unknown]
  - Hepatic lesion [Unknown]
  - Nerve compression [Unknown]
  - Oral fungal infection [Unknown]
  - Blood creatinine increased [Unknown]
  - Burning sensation [Unknown]
  - Procedural site reaction [Unknown]
  - Oedema peripheral [Unknown]
  - Scoliosis [Unknown]
  - Radicular pain [Unknown]
  - Metastases to bone [Unknown]
  - Malignant neoplasm progression [Unknown]
  - Joint dislocation [Unknown]
  - Lordosis [Unknown]
  - Vomiting [Unknown]
  - Pelvic pain [Unknown]
